FAERS Safety Report 7505927-X (Version None)
Quarter: 2011Q2

REPORT INFORMATION
  Report Type: 
  Country: None (occurrence: None)
  Receive Date: 20110411
  Receipt Date: 20101101
  Transmission Date: 20111010
  Serious: Yes (Other)
  Sender: FDA-Public Use
  Company Number: AE 2010-357

PATIENT
  Age: 82 Year
  Sex: Female
  Weight: 67.1324 kg

DRUGS (4)
  1. BISACODYL [Concomitant]
  2. TYLENOL-500 [Concomitant]
  3. FAZACLO ODT [Suspect]
     Indication: SENILE DEMENTIA
     Dosage: 6.25 MG @1600 PO AND 12.5 MG QHS PO
     Route: 048
     Dates: start: 20100819, end: 20101007
  4. LEXAPRO [Concomitant]

REACTIONS (1)
  - AGRANULOCYTOSIS [None]
